FAERS Safety Report 4376115-3 (Version None)
Quarter: 2004Q2

REPORT INFORMATION
  Report Type: 
  Country: None (occurrence: None)
  Receive Date: 20040609
  Receipt Date: 20040609
  Transmission Date: 20050107
  Serious: Yes (Life-Threatening, Hospitalization)
  Sender: FDA-Public Use
  Company Number: None

PATIENT
  Age: 53 Year
  Sex: Female
  Weight: 64.9 kg

DRUGS (7)
  1. ISOVUE-300 [Suspect]
     Indication: SCAN WITH CONTRAST
     Dosage: 100 ML IV
     Route: 042
     Dates: start: 20040315
  2. SOMA [Concomitant]
  3. FOSAMAX [Concomitant]
  4. PROZAC [Concomitant]
  5. PREMARIN [Concomitant]
  6. ASPIRIN [Concomitant]
  7. MV [Concomitant]

REACTIONS (5)
  - BLOOD PRESSURE DECREASED [None]
  - DYSPHAGIA [None]
  - FEELING ABNORMAL [None]
  - FEELING HOT [None]
  - URTICARIA [None]
